FAERS Safety Report 14419634 (Version 3)
Quarter: 2018Q2

REPORT INFORMATION
  Report Type: Spontaneous
  Country: US (occurrence: US)
  Receive Date: 20180122
  Receipt Date: 20180409
  Transmission Date: 20180711
  Serious: Yes (Hospitalization, Other)
  Sender: FDA-Public Use
  Company Number: US-SA-2018SA012568

PATIENT
  Age: 63 Year
  Sex: Male

DRUGS (18)
  1. SOLOSTAR [Suspect]
     Active Substance: DEVICE
     Indication: DIABETES MELLITUS
     Dates: start: 201801
  2. HUMALOG [Concomitant]
     Active Substance: INSULIN LISPRO
     Dosage: SLIDING SCALE BEFORE MEALS 7-10 UNITS
     Route: 065
  3. LANTUS SOLOSTAR [Suspect]
     Active Substance: INSULIN GLARGINE
     Indication: NEOPLASM MALIGNANT
     Dosage: DOSE:40 UNIT(S)
     Route: 051
     Dates: start: 20161009, end: 20180125
  4. SOLOSTAR [Suspect]
     Active Substance: DEVICE
     Indication: NEOPLASM MALIGNANT
     Dates: start: 201801
  5. COLCRYS [Concomitant]
     Active Substance: COLCHICINE
     Indication: ARTHRITIS
     Route: 065
     Dates: start: 2006
  6. LANTUS SOLOSTAR [Suspect]
     Active Substance: INSULIN GLARGINE
     Indication: NEOPLASM MALIGNANT
     Dosage: DOSE:40 UNIT(S)
     Route: 051
     Dates: start: 201801
  7. LOVENOX [Suspect]
     Active Substance: ENOXAPARIN SODIUM
     Indication: POSTOPERATIVE CARE
     Route: 058
     Dates: start: 2017
  8. LOVENOX [Suspect]
     Active Substance: ENOXAPARIN SODIUM
     Indication: THROMBOSIS
     Route: 058
     Dates: start: 2017
  9. LANTUS SOLOSTAR [Suspect]
     Active Substance: INSULIN GLARGINE
     Indication: DIABETES MELLITUS
     Dosage: DOSE:40 UNIT(S)
     Route: 051
     Dates: start: 201801
  10. LOVENOX [Suspect]
     Active Substance: ENOXAPARIN SODIUM
     Indication: POSTOPERATIVE CARE
     Route: 058
     Dates: start: 201610, end: 2017
  11. ALLOPURINOL. [Concomitant]
     Active Substance: ALLOPURINOL
     Indication: ARTHRITIS
     Route: 065
     Dates: start: 2006
  12. LANTUS SOLOSTAR [Suspect]
     Active Substance: INSULIN GLARGINE
     Indication: DIABETES MELLITUS
     Dosage: DOSE:40 UNIT(S)
     Route: 051
     Dates: start: 20161009, end: 20180125
  13. SOLOSTAR [Suspect]
     Active Substance: DEVICE
     Indication: NEOPLASM MALIGNANT
     Dates: start: 20161009, end: 20180125
  14. SOLOSTAR [Suspect]
     Active Substance: DEVICE
     Indication: DIABETES MELLITUS
     Dates: start: 20161009, end: 20180125
  15. LOVENOX [Suspect]
     Active Substance: ENOXAPARIN SODIUM
     Indication: THROMBOSIS
     Route: 058
     Dates: start: 201610, end: 2017
  16. XARELTO [Concomitant]
     Active Substance: RIVAROXABAN
  17. METFORMIN [Concomitant]
     Active Substance: METFORMIN HYDROCHLORIDE
  18. METOPROLOL. [Concomitant]
     Active Substance: METOPROLOL

REACTIONS (22)
  - Thrombosis [Recovered/Resolved]
  - Neoplasm [Unknown]
  - Abdominal distension [Recovering/Resolving]
  - Weight increased [Recovering/Resolving]
  - Fall [Unknown]
  - Neuropathy peripheral [Not Recovered/Not Resolved]
  - Dyspepsia [Recovered/Resolved]
  - Nephrolithiasis [Recovered/Resolved]
  - Lymphadenopathy [Unknown]
  - Vascular compression [Unknown]
  - Cardiac disorder [Unknown]
  - Rib fracture [Unknown]
  - Hyperglycaemia [Unknown]
  - Vomiting [Recovered/Resolved]
  - Gastrooesophageal reflux disease [Recovering/Resolving]
  - Product use in unapproved indication [Unknown]
  - Vein disorder [Unknown]
  - Joint dislocation [Not Recovered/Not Resolved]
  - Pain in extremity [Unknown]
  - Insomnia [Not Recovered/Not Resolved]
  - Product use issue [Unknown]
  - Testicular disorder [Unknown]

NARRATIVE: CASE EVENT DATE: 2016
